FAERS Safety Report 7046997-5 (Version None)
Quarter: 2010Q4

REPORT INFORMATION
  Report Type: 
  Country: None (occurrence: None)
  Receive Date: 20101012
  Receipt Date: 20100930
  Transmission Date: 20110411
  Serious: Yes (Hospitalization)
  Sender: FDA-Public Use
  Company Number: TCI2010A03701

PATIENT
  Age: 57 Year
  Sex: Male

DRUGS (6)
  1. ACTOS [Suspect]
     Dosage: 15 MG (15 MG, 1 IN 1 D) PER ORAL
     Route: 048
     Dates: start: 20100406, end: 20100906
  2. OLMESARTAN MEDOXOMIL [Concomitant]
  3. CARNACULIN (KALLIDINOGENASE) [Concomitant]
  4. GLYBURIDE [Concomitant]
  5. ALOSENN (ACHILLEA MILLEFOLIUM, SENNA ALEXANDRINA LEAF, SENNA ALEXANDRI [Concomitant]
  6. ADONA (CARBAZOCHROME SODIUM SULFONATE) [Concomitant]

REACTIONS (10)
  - ASCITES [None]
  - BLOOD ALBUMIN DECREASED [None]
  - DEEP VEIN THROMBOSIS [None]
  - DILATATION VENTRICULAR [None]
  - ECG SIGNS OF MYOCARDIAL ISCHAEMIA [None]
  - GENERALISED OEDEMA [None]
  - PLEURAL EFFUSION [None]
  - PROTEIN URINE PRESENT [None]
  - PULMONARY EMBOLISM [None]
  - WEIGHT INCREASED [None]
